FAERS Safety Report 17158193 (Version 1)
Quarter: 2019Q4

REPORT INFORMATION
  Report Type: Spontaneous
  Country: US (occurrence: US)
  Receive Date: 20191216
  Receipt Date: 20191216
  Transmission Date: 20200122
  Serious: Yes (Other)
  Sender: FDA-Public Use
  Company Number: US-BAYER-2019-221039

PATIENT
  Age: 14 Year
  Sex: Male

DRUGS (2)
  1. KOGENATE FS [Suspect]
     Active Substance: ANTIHEMOPHILIC FACTOR, HUMAN RECOMBINANT
     Dosage: UNK UNK, ONCE
     Dates: start: 201910, end: 201910
  2. KOGENATE FS [Suspect]
     Active Substance: ANTIHEMOPHILIC FACTOR, HUMAN RECOMBINANT
     Dosage: 1300 IU, BIW
     Dates: start: 201312

REACTIONS (1)
  - Haemarthrosis [Recovered/Resolved]

NARRATIVE: CASE EVENT DATE: 201910
